FAERS Safety Report 24782686 (Version 1)
Quarter: 2024Q4

REPORT INFORMATION
  Report Type: Spontaneous
  Country: US (occurrence: US)
  Receive Date: 20241227
  Receipt Date: 20241227
  Transmission Date: 20250114
  Serious: Yes (Other)
  Sender: MYLAN
  Company Number: US-MYLANLABS-2024M1114983

PATIENT
  Age: 52 Year
  Sex: Female

DRUGS (19)
  1. METHYLPREDNISOLONE [Suspect]
     Active Substance: METHYLPREDNISOLONE
     Indication: Scleritis
     Dosage: 1 GRAM, QD
     Route: 042
  2. METHYLPREDNISOLONE [Suspect]
     Active Substance: METHYLPREDNISOLONE
     Indication: Parophthalmia
  3. METHYLPREDNISOLONE [Suspect]
     Active Substance: METHYLPREDNISOLONE
     Indication: Sinus disorder
  4. PREDNISONE [Suspect]
     Active Substance: PREDNISONE
     Indication: Scleritis
     Dosage: 60 MILLIGRAM, WITH A WEEKLY TAPER
     Route: 048
  5. PREDNISONE [Suspect]
     Active Substance: PREDNISONE
     Indication: Parophthalmia
  6. PREDNISONE [Suspect]
     Active Substance: PREDNISONE
     Indication: Sinus disorder
  7. PREDNISOLONE [Suspect]
     Active Substance: PREDNISOLONE
     Indication: Scleritis
     Dosage: UNK, TID (DROPS, THREE TIMES A DAY IN BOTH EYE)
     Route: 061
  8. PREDNISOLONE [Suspect]
     Active Substance: PREDNISOLONE
     Indication: Parophthalmia
  9. PREDNISOLONE [Suspect]
     Active Substance: PREDNISOLONE
     Indication: Sinus disorder
  10. ERYTHROMYCIN [Concomitant]
     Active Substance: ERYTHROMYCIN
     Indication: Diplopia
     Dosage: UNK
     Route: 065
  11. ERYTHROMYCIN [Concomitant]
     Active Substance: ERYTHROMYCIN
     Indication: Ophthalmoplegia
  12. LEVOFLOXACIN [Concomitant]
     Active Substance: LEVOFLOXACIN
     Indication: Diplopia
     Dosage: UNK
     Route: 048
  13. LEVOFLOXACIN [Concomitant]
     Active Substance: LEVOFLOXACIN
     Indication: Ophthalmoplegia
  14. PHENYLEPHRINE [Concomitant]
     Active Substance: PHENYLEPHRINE
     Indication: Diplopia
     Dosage: UNK
     Route: 065
  15. PHENYLEPHRINE [Concomitant]
     Active Substance: PHENYLEPHRINE
     Indication: Ophthalmoplegia
  16. PHENYLEPHRINE [Concomitant]
     Active Substance: PHENYLEPHRINE
     Indication: Conjunctival oedema
  17. METHOTREXATE [Concomitant]
     Active Substance: METHOTREXATE
     Indication: Scleritis
     Dosage: 15 MILLIGRAM, QW
     Route: 048
  18. METHOTREXATE [Concomitant]
     Active Substance: METHOTREXATE
     Indication: Parophthalmia
  19. METHOTREXATE [Concomitant]
     Active Substance: METHOTREXATE
     Indication: Sinus disorder

REACTIONS (1)
  - Type 2 diabetes mellitus [Unknown]
